FAERS Safety Report 8163225-8 (Version None)
Quarter: 2012Q1

REPORT INFORMATION
  Report Type: 
  Country: None (occurrence: None)
  Receive Date: 20120224
  Receipt Date: 20110706
  Transmission Date: 20120608
  Serious: No
  Sender: FDA-Public Use
  Company Number: US-PFIZER INC-K201100786

PATIENT
  Age: 83 Year
  Sex: Female
  Weight: 81.633 kg

DRUGS (1)
  1. FLECTOR [Suspect]
     Indication: PAIN IN EXTREMITY
     Dosage: ONE-HALF TO ONE PATCH, PRN
     Route: 061
     Dates: start: 20100101, end: 20110601

REACTIONS (2)
  - APPLICATION SITE DISCOLOURATION [None]
  - APPLICATION SITE HAEMATOMA [None]
